FAERS Safety Report 13745742 (Version 21)
Quarter: 2018Q4

REPORT INFORMATION
  Report Type: Report from Study
  Country: EC (occurrence: EC)
  Receive Date: 20170712
  Receipt Date: 20181004
  Transmission Date: 20190204
  Serious: Yes (Hospitalization, Other)
  Sender: FDA-Public Use
  Company Number: PHHY2017EC095974

PATIENT
  Age: 47 Year
  Sex: Female
  Weight: 60.32 kg

DRUGS (15)
  1. INFLIXIMAB [Suspect]
     Active Substance: INFLIXIMAB
     Indication: PRODUCT USED FOR UNKNOWN INDICATION
     Route: 065
  2. SOSSER [Concomitant]
     Indication: DEPRESSION
     Dosage: 50 MG, QD
     Route: 048
     Dates: start: 20161101
  3. ZINC. [Concomitant]
     Active Substance: ZINC
     Indication: PRODUCT USED FOR UNKNOWN INDICATION
     Route: 065
  4. COSENTYX [Suspect]
     Active Substance: SECUKINUMAB
     Dosage: 300 MG, QMO
     Route: 058
  5. COSENTYX [Suspect]
     Active Substance: SECUKINUMAB
     Dosage: UNK, QMO
     Route: 058
     Dates: end: 20180313
  6. SERTRALINE [Suspect]
     Active Substance: SERTRALINE HYDROCHLORIDE
     Indication: DEPRESSION
     Dosage: 50 MG, QD
     Route: 048
     Dates: start: 20170401
  7. SOSSER [Concomitant]
     Indication: ANXIETY
     Dosage: 25 MG, QD
     Route: 048
     Dates: start: 20170908
  8. VITAMIN E [Concomitant]
     Active Substance: .ALPHA.-TOCOPHEROL
     Indication: PRODUCT USED FOR UNKNOWN INDICATION
     Route: 065
  9. COSENTYX [Suspect]
     Active Substance: SECUKINUMAB
     Dosage: 300 MG, QMO
     Route: 058
     Dates: start: 20180921
  10. COSENTYX [Suspect]
     Active Substance: SECUKINUMAB
     Indication: PSORIASIS
     Dosage: 300 MG, QW
     Route: 058
     Dates: start: 20170609
  11. COSENTYX [Suspect]
     Active Substance: SECUKINUMAB
     Dosage: 300 MG, QW
     Route: 058
     Dates: start: 20170623
  12. COSENTYX [Suspect]
     Active Substance: SECUKINUMAB
     Dosage: 300 MG, QMO
     Route: 058
     Dates: start: 20180227
  13. COSENTYX [Suspect]
     Active Substance: SECUKINUMAB
     Dosage: 300 MG, QMO
     Route: 058
     Dates: start: 20170921
  14. COSENTYX [Suspect]
     Active Substance: SECUKINUMAB
     Dosage: 150 MG, Q2MO
     Route: 058
     Dates: start: 20180905
  15. SERTRALINE [Suspect]
     Active Substance: SERTRALINE HYDROCHLORIDE
     Indication: ANXIETY

REACTIONS (66)
  - Urticaria [Not Recovered/Not Resolved]
  - Acne [Not Recovered/Not Resolved]
  - Pruritus [Unknown]
  - Influenza [Not Recovered/Not Resolved]
  - Cervicobrachial syndrome [Not Recovered/Not Resolved]
  - Malaise [Recovered/Resolved]
  - Folliculitis [Unknown]
  - Auditory nerve disorder [Not Recovered/Not Resolved]
  - Pharyngeal oedema [Unknown]
  - Skin exfoliation [Not Recovered/Not Resolved]
  - Somnolence [Not Recovered/Not Resolved]
  - Pyrexia [Recovering/Resolving]
  - Oropharyngeal discomfort [Recovering/Resolving]
  - Back pain [Unknown]
  - Drug hypersensitivity [Not Recovered/Not Resolved]
  - Skin lesion [Unknown]
  - Productive cough [Unknown]
  - Ear pain [Not Recovered/Not Resolved]
  - Ocular hyperaemia [Unknown]
  - Dizziness [Recovered/Resolved]
  - Hypersensitivity [Unknown]
  - Migraine [Unknown]
  - Decreased immune responsiveness [Unknown]
  - Skin burning sensation [Unknown]
  - Fatigue [Recovered/Resolved]
  - Feeling abnormal [Unknown]
  - Gastrooesophageal reflux disease [Recovered/Resolved]
  - Tonsillitis [Unknown]
  - Vulvovaginal dryness [Not Recovered/Not Resolved]
  - Musculoskeletal pain [Not Recovered/Not Resolved]
  - Discomfort [Not Recovered/Not Resolved]
  - Arthralgia [Not Recovered/Not Resolved]
  - Epistaxis [Unknown]
  - Dry throat [Unknown]
  - Eye inflammation [Unknown]
  - Dermatitis atopic [Unknown]
  - Pain [Recovered/Resolved]
  - Mydriasis [Recovered/Resolved]
  - Dry mouth [Unknown]
  - Nasal dryness [Unknown]
  - Vulvovaginal discomfort [Not Recovered/Not Resolved]
  - Vulvovaginal burning sensation [Not Recovered/Not Resolved]
  - Chromaturia [Not Recovered/Not Resolved]
  - Menstrual disorder [Unknown]
  - Bone pain [Unknown]
  - Chills [Unknown]
  - White blood cell count decreased [Unknown]
  - Craniocervical syndrome [Not Recovered/Not Resolved]
  - Erythema [Unknown]
  - Eye pain [Not Recovered/Not Resolved]
  - Headache [Not Recovered/Not Resolved]
  - Pharyngitis [Recovered/Resolved]
  - Pain of skin [Not Recovered/Not Resolved]
  - Heart rate increased [Recovered/Resolved]
  - Pharyngotonsillitis [Not Recovered/Not Resolved]
  - Pyrexia [Recovered/Resolved]
  - Hypoacusis [Not Recovered/Not Resolved]
  - Haemoptysis [Unknown]
  - Oropharyngeal pain [Not Recovered/Not Resolved]
  - Aphonia [Unknown]
  - Photosensitivity reaction [Recovered/Resolved]
  - Flatulence [Unknown]
  - Gastrointestinal disorder [Unknown]
  - Psoriasis [Not Recovered/Not Resolved]
  - Dizziness [Recovered/Resolved]
  - Facial pain [Not Recovered/Not Resolved]

NARRATIVE: CASE EVENT DATE: 201706
